FAERS Safety Report 9296084 (Version 1)
Quarter: 2013Q2

REPORT INFORMATION
  Report Type: Spontaneous
  Country: US (occurrence: US)
  Receive Date: 20130517
  Receipt Date: 20130517
  Transmission Date: 20140414
  Serious: No
  Sender: FDA-Public Use
  Company Number: US-TARO-2012P1067928

PATIENT
  Sex: Male

DRUGS (1)
  1. NYSTATIN + TRIAMCINOLONE ACETONIDE OINTMENT [Suspect]
     Indication: RASH
     Route: 061
     Dates: start: 20121214

REACTIONS (2)
  - Application site pain [Unknown]
  - Papule [Unknown]
